FAERS Safety Report 24803423 (Version 2)
Quarter: 2025Q4

REPORT INFORMATION
  Report Type: Report from Study
  Country: CA (occurrence: CA)
  Receive Date: 20250103
  Receipt Date: 20251110
  Transmission Date: 20260117
  Serious: Yes (Other)
  Sender: DR REDDYS
  Company Number: CA-DRL-USA-CAN/2025/01/000005

PATIENT
  Age: 52 Year
  Sex: Male

DRUGS (4)
  1. ZOLEDRONIC ACID [Suspect]
     Active Substance: ZOLEDRONIC ACID
     Indication: Osteoporosis
     Dosage: 5MG/100ML ONCE YEARLY
     Route: 065
     Dates: start: 20171219
  2. ZOLEDRONIC ACID [Suspect]
     Active Substance: ZOLEDRONIC ACID
     Dosage: 5MG/100ML ONCE YEARLY
     Route: 065
     Dates: start: 20221214
  3. ZOLEDRONIC ACID [Suspect]
     Active Substance: ZOLEDRONIC ACID
     Dosage: 5MG/100ML ONCE YEARLY
     Route: 065
     Dates: start: 20231220
  4. ZOLEDRONIC ACID [Suspect]
     Active Substance: ZOLEDRONIC ACID
     Dosage: 5MG/100ML ONCE YEARLY
     Route: 065
     Dates: start: 20241218

REACTIONS (8)
  - Suicidal ideation [Unknown]
  - Contusion [Unknown]
  - Nightmare [Unknown]
  - Administration site bruise [Unknown]
  - Pain [Unknown]
  - Hyperacusis [Unknown]
  - Tinnitus [Unknown]
  - Influenza like illness [Unknown]
